FAERS Safety Report 7644211-0 (Version None)
Quarter: 2011Q3

REPORT INFORMATION
  Report Type: 
  Country: None (occurrence: None)
  Receive Date: 20110729
  Receipt Date: 20110721
  Transmission Date: 20111222
  Serious: Yes (Other)
  Sender: FDA-Public Use
  Company Number: US-BAYER-2010-007971

PATIENT
  Age: 26 Year
  Sex: Female
  Weight: 82 kg

DRUGS (12)
  1. ZELNORM [Concomitant]
  2. ELMIRON [Concomitant]
  3. VALIUM [Concomitant]
  4. SKELAXIN [Concomitant]
  5. YASMIN [Suspect]
     Dosage: UNK
     Dates: start: 20060321, end: 20070501
  6. OMEPRAZOLE [Concomitant]
  7. CLONAZEPAM [Concomitant]
  8. IBUPROFEN [Concomitant]
  9. PAXIL [Concomitant]
  10. PERCOCET [Concomitant]
  11. NAPROXEN SODIUM + PSEUDOEPHEDRINE [Concomitant]
  12. ALPRAZOLAM [Concomitant]

REACTIONS (2)
  - CHOLECYSTECTOMY [None]
  - PAIN [None]
